FAERS Safety Report 4469113-2 (Version None)
Quarter: 2004Q4

REPORT INFORMATION
  Report Type: 
  Country: None (occurrence: None)
  Receive Date: 20041005
  Receipt Date: 20040921
  Transmission Date: 20050328
  Serious: Yes (Hospitalization)
  Sender: FDA-Public Use
  Company Number: A01200404605

PATIENT
  Age: 89 Year
  Sex: Male

DRUGS (15)
  1. PLAVIX [Suspect]
     Indication: MYOCARDIAL INFARCTION
     Dosage: 75 MG QD
     Route: 048
     Dates: start: 20040326, end: 20040413
  2. ATENOLOL [Suspect]
     Indication: ANGINA PECTORIS
     Route: 048
     Dates: start: 19990101, end: 20040413
  3. PLENDIL [Suspect]
     Indication: HYPERTENSION
     Route: 048
     Dates: start: 20040326, end: 20040413
  4. RAMIPRIL [Suspect]
     Indication: CARDIAC FAILURE
     Route: 048
     Dates: start: 20040402, end: 20040413
  5. LANSOPRAZOLE [Suspect]
     Indication: PROPHYLAXIS
     Route: 048
     Dates: start: 20040402
  6. KLEXANE - (ENOXAPARIN) - UNKNOWN - UNIT DOSE: UNKNOWN [Suspect]
     Indication: PROPHYLAXIS
     Route: 058
     Dates: start: 20040326
  7. TROMBYL - (ACETYLSALICYLIC ACID) - UNKNOWN - 75 MG [Suspect]
     Indication: PROPHYLAXIS
     Route: 048
     Dates: start: 20040326, end: 20040413
  8. ALVEDON (PARACETAMOL) [Concomitant]
  9. SIMVASTATIN [Concomitant]
  10. WARFARIN SODIUM [Concomitant]
  11. NITROMEX (GLYCERYL TRINITRATE) [Concomitant]
  12. SPIRONOLACTONE [Concomitant]
  13. DEXOFEN (DEXTROPROPOXYPHENE NAPSILATE) [Concomitant]
  14. FUROSEMIDE [Concomitant]
  15. IMDUR [Concomitant]

REACTIONS (16)
  - ANOREXIA [None]
  - ASTHENIA [None]
  - BLOOD CREATINE INCREASED [None]
  - BLOOD PRESSURE DIASTOLIC DECREASED [None]
  - BODY TEMPERATURE INCREASED [None]
  - BRADYCARDIA [None]
  - C-REACTIVE PROTEIN INCREASED [None]
  - DEPRESSED LEVEL OF CONSCIOUSNESS [None]
  - DRUG ERUPTION [None]
  - GENERAL PHYSICAL CONDITION ABNORMAL [None]
  - INFECTION [None]
  - MYOCARDIAL INFARCTION [None]
  - NERVOUS SYSTEM DISORDER [None]
  - NEUROLOGICAL SYMPTOM [None]
  - SEBORRHOEIC DERMATITIS [None]
  - WHITE BLOOD CELL COUNT INCREASED [None]
